FAERS Safety Report 19245112 (Version 6)
Quarter: 2021Q3

REPORT INFORMATION
  Report Type: Spontaneous
  Country: US (occurrence: US)
  Receive Date: 20210511
  Receipt Date: 20210830
  Transmission Date: 20211014
  Serious: Yes (Hospitalization)
  Sender: FDA-Public Use
  Company Number: US-ELI_LILLY_AND_COMPANY-US202105001272

PATIENT
  Age: 57 Year
  Sex: Male

DRUGS (9)
  1. HUMULIN 70/30 [Suspect]
     Active Substance: INSULIN HUMAN
     Indication: TYPE 2 DIABETES MELLITUS
     Dosage: 60 U, BID
     Route: 058
     Dates: start: 20210607
  2. HUMULIN 70/30 [Suspect]
     Active Substance: INSULIN HUMAN
     Dosage: 60 U, BID
     Route: 058
  3. HUMULIN 70/30 [Suspect]
     Active Substance: INSULIN HUMAN
     Indication: TYPE 2 DIABETES MELLITUS
     Dosage: 60 U, BID
     Route: 058
     Dates: start: 20210607
  4. HUMULIN 70/30 [Suspect]
     Active Substance: INSULIN HUMAN
     Indication: DIABETES MELLITUS
     Dosage: 100 U, DAILY
     Route: 058
     Dates: start: 2006
  5. HUMULIN 70/30 [Suspect]
     Active Substance: INSULIN HUMAN
     Indication: TYPE 2 DIABETES MELLITUS
     Dosage: 60 U, BID
     Route: 058
     Dates: start: 20210607
  6. HUMULIN 70/30 [Suspect]
     Active Substance: INSULIN HUMAN
     Dosage: 60 U, BID
     Route: 058
  7. HUMULIN 70/30 [Suspect]
     Active Substance: INSULIN HUMAN
     Indication: TYPE 2 DIABETES MELLITUS
     Dosage: 60 U, BID
     Route: 058
     Dates: start: 20210607
  8. HUMULIN 70/30 [Suspect]
     Active Substance: INSULIN HUMAN
     Dosage: 60 U, BID
     Route: 058
  9. HUMULIN 70/30 [Suspect]
     Active Substance: INSULIN HUMAN
     Dosage: 60 U, BID
     Route: 058

REACTIONS (8)
  - Skull fracture [Recovering/Resolving]
  - Memory impairment [Recovering/Resolving]
  - Dysphemia [Unknown]
  - Wrong technique in product usage process [Unknown]
  - Nasopharyngitis [Recovering/Resolving]
  - Wrong dosage formulation [Unknown]
  - Fall [Recovering/Resolving]
  - Blood glucose increased [Unknown]

NARRATIVE: CASE EVENT DATE: 2019
